FAERS Safety Report 6055065-0 (Version None)
Quarter: 2009Q1

REPORT INFORMATION
  Report Type: 
  Country: None (occurrence: None)
  Receive Date: 20090128
  Receipt Date: 20090119
  Transmission Date: 20090719
  Serious: Yes (Hospitalization)
  Sender: FDA-Public Use
  Company Number: FR-ROCHE-610240

PATIENT
  Age: 58 Year
  Sex: Male

DRUGS (4)
  1. XELODA [Suspect]
     Indication: COLON CANCER
     Dosage: 1.5 G TWICE DAILY PER DAY DURING 14 DAYS.
     Route: 048
     Dates: start: 20081103
  2. XELODA [Suspect]
     Route: 048
  3. AVASTIN [Suspect]
     Indication: COLON CANCER
     Dosage: DOSAGE : 700 MG AT D4.
     Route: 042
     Dates: start: 20081103
  4. CAMPTOSAR [Suspect]
     Indication: COLON CANCER
     Dosage: DOSAGE REGIMEN: 430 MG AT D4.
     Route: 042
     Dates: start: 20081103

REACTIONS (3)
  - APLASIA [None]
  - FEBRILE BONE MARROW APLASIA [None]
  - PYREXIA [None]
